FAERS Safety Report 16305384 (Version 1)
Quarter: 2019Q2

REPORT INFORMATION
  Report Type: Spontaneous
  Country: US (occurrence: US)
  Receive Date: 20190512
  Receipt Date: 20190512
  Transmission Date: 20190711
  Serious: Yes (Other)
  Sender: FDA-Public Use
  Company Number: None

PATIENT
  Age: 72 Year
  Sex: Male
  Weight: 97.2 kg

DRUGS (1)
  1. LOSARTAN POTASSIUM 50MG TAB CIT [Suspect]
     Active Substance: LOSARTAN POTASSIUM
     Indication: HYPERTENSION
     Dosage: ?          QUANTITY:1 TABLET(S);?
     Route: 048
     Dates: start: 20190430, end: 20190511

REACTIONS (4)
  - Rash [None]
  - Pruritus [None]
  - Cough [None]
  - Genital rash [None]

NARRATIVE: CASE EVENT DATE: 20190429
